FAERS Safety Report 17847514 (Version 2)
Quarter: 2020Q2

REPORT INFORMATION
  Report Type: Report from Study
  Country: NL (occurrence: NL)
  Receive Date: 20200601
  Receipt Date: 20200608
  Transmission Date: 20200714
  Serious: Yes (Other)
  Sender: FDA-Public Use
  Company Number: NL-MYLANLABS-2020M1052805

PATIENT
  Sex: Male

DRUGS (1)
  1. GLATIRAMEERACETAAT MYLAN 20 MG/ML [Suspect]
     Active Substance: GLATIRAMER ACETATE
     Indication: MULTIPLE SCLEROSIS
     Dosage: UNK, QD (1.00 X PER DAY)
     Route: 058

REACTIONS (2)
  - Neuralgia [Unknown]
  - Drug ineffective [Not Recovered/Not Resolved]
